FAERS Safety Report 4320444-6 (Version None)
Quarter: 2004Q1

REPORT INFORMATION
  Report Type: 
  Country: None (occurrence: None)
  Receive Date: 20040317
  Receipt Date: 20040304
  Transmission Date: 20041129
  Serious: Yes (Other)
  Sender: FDA-Public Use
  Company Number: 2003123133

PATIENT
  Age: 63 Year
  Sex: Male
  Weight: 63.5036 kg

DRUGS (3)
  1. VIAGRA [Suspect]
     Indication: ILL-DEFINED DISORDER
     Dosage: 100 MG (PRN), ORAL
     Route: 048
  2. ALPROSTADIL [Suspect]
     Indication: ILL-DEFINED DISORDER
  3. ATORVASTATIN CALCIUM [Concomitant]

REACTIONS (5)
  - DIARRHOEA [None]
  - DISCOMFORT [None]
  - DRUG INEFFECTIVE [None]
  - HAEMATURIA TRAUMATIC [None]
  - MEDICATION ERROR [None]
